FAERS Safety Report 6995943-9 (Version None)
Quarter: 2010Q3

REPORT INFORMATION
  Report Type: 
  Country: None (occurrence: None)
  Receive Date: 20100918
  Receipt Date: 20081125
  Transmission Date: 20110219
  Serious: No
  Sender: FDA-Public Use
  Company Number: US-WYE-H06969508

PATIENT
  Sex: Male
  Weight: 106.69 kg

DRUGS (7)
  1. EFFEXOR XR [Suspect]
     Indication: DEPRESSION
     Dosage: UNKNOWN
     Dates: start: 20060101, end: 20070101
  2. EFFEXOR XR [Suspect]
     Indication: ANXIETY
     Dates: start: 20070101, end: 20080909
  3. EFFEXOR XR [Suspect]
     Dates: start: 20080910, end: 20080923
  4. EFFEXOR XR [Suspect]
     Route: 048
     Dates: start: 20080924, end: 20081009
  5. EFFEXOR XR [Suspect]
     Route: 048
     Dates: start: 20081001, end: 20081113
  6. EFFEXOR XR [Suspect]
     Dosage: HALF THE CONTENTS OF A 37.5 MG CAPSULE EVERY 3-4 DAYS
     Route: 048
     Dates: start: 20081114
  7. XANAX [Concomitant]

REACTIONS (4)
  - DIZZINESS [None]
  - DRUG WITHDRAWAL SYNDROME [None]
  - IMPATIENCE [None]
  - PARAESTHESIA [None]
